FAERS Safety Report 13761084 (Version 1)
Quarter: 2017Q3

REPORT INFORMATION
  Report Type: Spontaneous
  Country: US (occurrence: US)
  Receive Date: 20170717
  Receipt Date: 20170717
  Transmission Date: 20171127
  Serious: Yes (Other)
  Sender: FDA-Public Use
  Company Number: US-MYLANLABS-2017M1042147

PATIENT

DRUGS (14)
  1. CRIZOTINIB [Suspect]
     Active Substance: CRIZOTINIB
     Indication: NON-RENAL CELL CARCINOMA OF KIDNEY
     Route: 048
  2. CYCLOPHOSPHAMIDE. [Concomitant]
     Active Substance: CYCLOPHOSPHAMIDE
     Indication: NON-RENAL CELL CARCINOMA OF KIDNEY
     Dosage: 250 MG/M2
     Route: 065
  3. TOPOTECAN [Concomitant]
     Active Substance: TOPOTECAN HYDROCHLORIDE
     Indication: NON-RENAL CELL CARCINOMA OF KIDNEY
     Dosage: 0.75MG/M2
     Route: 065
  4. GEMCITABINE [Suspect]
     Active Substance: GEMCITABINE\GEMCITABINE HYDROCHLORIDE
     Indication: NON-RENAL CELL CARCINOMA OF KIDNEY
     Dosage: 1000 MG/M2
     Route: 065
  5. METHOTREXATE. [Concomitant]
     Active Substance: METHOTREXATE
     Dosage: 20 MG/M2
     Route: 048
  6. BORTEZOMIB [Suspect]
     Active Substance: BORTEZOMIB
     Indication: NON-RENAL CELL CARCINOMA OF KIDNEY
     Dosage: 1MG/M2
     Route: 065
  7. CARBOPLATIN. [Concomitant]
     Active Substance: CARBOPLATIN
     Indication: NON-RENAL CELL CARCINOMA OF KIDNEY
     Dosage: 300 MG/M2
     Route: 065
  8. DOXORUBICIN [Concomitant]
     Active Substance: DOXORUBICIN
     Indication: NON-RENAL CELL CARCINOMA OF KIDNEY
     Dosage: 30 MG/M2
     Route: 065
  9. CARBOPLATIN. [Suspect]
     Active Substance: CARBOPLATIN
     Indication: NON-RENAL CELL CARCINOMA OF KIDNEY
     Dosage: 400 MG/M2
     Route: 065
  10. METHOTREXATE. [Concomitant]
     Active Substance: METHOTREXATE
     Indication: NON-RENAL CELL CARCINOMA OF KIDNEY
     Dosage: 30 MG/M2
     Route: 065
  11. CISPLATIN. [Suspect]
     Active Substance: CISPLATIN
     Indication: NON-RENAL CELL CARCINOMA OF KIDNEY
     Dosage: 70 MG/M2
     Route: 065
  12. PACLITAXEL. [Suspect]
     Active Substance: PACLITAXEL
     Indication: NON-RENAL CELL CARCINOMA OF KIDNEY
     Dosage: 80 MG/M2
     Route: 065
  13. BORTEZOMIB [Suspect]
     Active Substance: BORTEZOMIB
     Dosage: 1-1.5 MG/M2
     Route: 065
  14. VINBLASTINE [Concomitant]
     Active Substance: VINBLASTINE
     Indication: NON-RENAL CELL CARCINOMA OF KIDNEY
     Dosage: 3 MG/M2
     Route: 065

REACTIONS (5)
  - Diplopia [Unknown]
  - Vision blurred [Unknown]
  - Nausea [Unknown]
  - Bone marrow failure [Unknown]
  - Vomiting [Unknown]
